FAERS Safety Report 13911379 (Version 1)
Quarter: 2017Q3

REPORT INFORMATION
  Report Type: Spontaneous
  Country: TR (occurrence: TR)
  Receive Date: 20170828
  Receipt Date: 20170828
  Transmission Date: 20171127
  Serious: Yes (Life-Threatening)
  Sender: FDA-Public Use
  Company Number: PHHY2017TR124169

PATIENT
  Age: 2 Year
  Sex: Male

DRUGS (5)
  1. METHOTREXATE. [Suspect]
     Active Substance: METHOTREXATE
     Indication: STILL^S DISEASE
     Dosage: 15 MG/M2, QW
     Route: 048
  2. ASPIRIN. [Concomitant]
     Active Substance: ASPIRIN
     Indication: PRODUCT USED FOR UNKNOWN INDICATION
     Route: 065
  3. ANAKINRA [Concomitant]
     Active Substance: ANAKINRA
     Indication: PRODUCT USED FOR UNKNOWN INDICATION
     Dosage: 2 MG/KG, QD
     Route: 065
  4. METILPREDNISOLONE [Suspect]
     Active Substance: METHYLPREDNISOLONE
     Indication: STILL^S DISEASE
     Dosage: 30 MG/KG, QD
     Route: 065
  5. METILPREDNISOLONE [Suspect]
     Active Substance: METHYLPREDNISOLONE
     Dosage: 1 MG/KG, QD
     Route: 065

REACTIONS (3)
  - Pyrexia [Unknown]
  - Histiocytosis haematophagic [Unknown]
  - Epstein-Barr virus infection [Unknown]
